FAERS Safety Report 6129158-3 (Version None)
Quarter: 2009Q1

REPORT INFORMATION
  Report Type: 
  Country: None (occurrence: None)
  Receive Date: 20090323
  Receipt Date: 20090323
  Transmission Date: 20090719
  Serious: Yes (Other)
  Sender: FDA-Public Use
  Company Number: None

PATIENT
  Age: 61 Year
  Sex: Female
  Weight: 72.1219 kg

DRUGS (5)
  1. VISTARIL [Suspect]
     Indication: SLEEP DISORDER
     Dosage: 20 MG 1 X AT NIGHT CAPSULE
  2. PAXIL [Concomitant]
  3. LASIX [Concomitant]
  4. COREG [Concomitant]
  5. KLOR-CON [Concomitant]

REACTIONS (6)
  - CONTUSION [None]
  - FEELING COLD [None]
  - MUSCULOSKELETAL STIFFNESS [None]
  - NASOPHARYNGITIS [None]
  - SKIN DISCOLOURATION [None]
  - STRESS [None]
